FAERS Safety Report 17977241 (Version 2)
Quarter: 2020Q3

REPORT INFORMATION
  Report Type: Report from Study
  Country: None (occurrence: US)
  Receive Date: 20200702
  Receipt Date: 20200724
  Transmission Date: 20201103
  Serious: Yes (Other)
  Sender: FDA-Public Use
  Company Number: US-ABBVIE-20K-163-3467165-00

PATIENT
  Age: 55 Year
  Sex: Female
  Weight: 84.44 kg

DRUGS (5)
  1. RINVOQ [Suspect]
     Active Substance: UPADACITINIB
     Indication: RHEUMATOID ARTHRITIS
     Route: 048
     Dates: start: 201911, end: 20200505
  2. DULOXETINE. [Concomitant]
     Active Substance: DULOXETINE
     Indication: RHEUMATOID ARTHRITIS
  3. SULFASALAZINE. [Concomitant]
     Active Substance: SULFASALAZINE
     Indication: RHEUMATOID ARTHRITIS
  4. DULOXETINE. [Concomitant]
     Active Substance: DULOXETINE
  5. LEFLUNOMIDE. [Concomitant]
     Active Substance: LEFLUNOMIDE
     Indication: RHEUMATOID ARTHRITIS

REACTIONS (5)
  - Central venous catheterisation [Unknown]
  - Spinal osteoarthritis [Unknown]
  - Post procedural infection [Unknown]
  - Rheumatoid arthritis [Unknown]
  - Back pain [Unknown]

NARRATIVE: CASE EVENT DATE: 2020
